FAERS Safety Report 20226823 (Version 1)
Quarter: 2021Q4

REPORT INFORMATION
  Report Type: Spontaneous
  Country: JP (occurrence: JP)
  Receive Date: 20211224
  Receipt Date: 20211224
  Transmission Date: 20220304
  Serious: Yes (Other)
  Sender: FDA-Public Use
  Company Number: JP-MEIJISEIKA-202105609

PATIENT
  Age: 35 Year
  Sex: Female

DRUGS (6)
  1. REFLEX [Suspect]
     Active Substance: MIRTAZAPINE
     Dosage: UNK
     Route: 048
  2. OLANZAPINE [Suspect]
     Active Substance: OLANZAPINE
     Dosage: 100 MILLIGRAM
     Route: 048
  3. ESCITALOPRAM OXALATE [Concomitant]
     Active Substance: ESCITALOPRAM OXALATE
     Dosage: 140 MILLIGRAM/DAY
  4. VALPROATE SODIUM [Concomitant]
     Active Substance: VALPROATE SODIUM
     Dosage: 2400 MILLIGRAM/DAY
  5. REFLEX [Concomitant]
     Active Substance: MIRTAZAPINE
     Dosage: 150 MILLIGRAM/DAY
  6. BROTIZOLAM [Concomitant]
     Active Substance: BROTIZOLAM
     Dosage: 3 MILLIGRAM,/DAY

REACTIONS (2)
  - Intentional overdose [Unknown]
  - Movement disorder [Unknown]
